FAERS Safety Report 9436962 (Version 1)
Quarter: 2013Q3

REPORT INFORMATION
  Report Type: Spontaneous
  Country: GB (occurrence: GB)
  Receive Date: 20130802
  Receipt Date: 20130802
  Transmission Date: 20140515
  Serious: Yes (Other)
  Sender: FDA-Public Use
  Company Number: GB-BRISTOL-MYERS SQUIBB COMPANY-19130764

PATIENT
  Age: 58 Year
  Sex: Female
  Weight: 91.2 kg

DRUGS (2)
  1. ADCORTYL INJ 40 MG/ML [Suspect]
     Indication: PERIARTHRITIS
     Route: 014
     Dates: start: 20130530, end: 20130530
  2. RAMIPRIL [Concomitant]
     Indication: HYPERTENSION

REACTIONS (3)
  - Rash pruritic [Recovered/Resolved]
  - Muscle spasms [Recovered/Resolved]
  - Vaginal haemorrhage [Recovered/Resolved]
